FAERS Safety Report 21507569 (Version 1)
Quarter: 2022Q4

REPORT INFORMATION
  Report Type: Spontaneous
  Country: US (occurrence: None)
  Receive Date: 20221025
  Receipt Date: 20221025
  Transmission Date: 20230112
  Serious: Yes (Life-Threatening, Disabling, Other)
  Sender: FDA-Public Use
  Company Number: None

PATIENT
  Age: 55 Year
  Sex: Female
  Weight: 58.5 kg

DRUGS (5)
  1. TRINTELLIX [Suspect]
     Active Substance: VORTIOXETINE HYDROBROMIDE
     Indication: Depression
     Dosage: FREQUENCY : DAILY;?OTHER ROUTE : MOUTH;?
     Route: 050
  2. TRINTELLIX [Concomitant]
     Active Substance: VORTIOXETINE HYDROBROMIDE
  3. TAMOXIFEN [Concomitant]
     Active Substance: TAMOXIFEN
  4. ATENOLOL [Concomitant]
     Active Substance: ATENOLOL
  5. PANTOPRAZOLE [Concomitant]
     Active Substance: PANTOPRAZOLE

REACTIONS (13)
  - Product contamination physical [None]
  - Product packaging issue [None]
  - Fatigue [None]
  - Dizziness [None]
  - Dyspnoea [None]
  - Skin disorder [None]
  - Vomiting [None]
  - Dizziness [None]
  - Heart rate increased [None]
  - Abdominal pain [None]
  - Asthenia [None]
  - Sensory disturbance [None]
  - Red blood cell count increased [None]

NARRATIVE: CASE EVENT DATE: 20220711
